FAERS Safety Report 9226250 (Version 1)
Quarter: 2013Q2

REPORT INFORMATION
  Report Type: Spontaneous
  Country: ES (occurrence: ES)
  Receive Date: 20130411
  Receipt Date: 20130411
  Transmission Date: 20140414
  Serious: Yes (Other)
  Sender: FDA-Public Use
  Company Number: ES-PFIZER INC-2013111284

PATIENT
  Age: 43 Year
  Sex: Female

DRUGS (24)
  1. ECALTA [Suspect]
     Indication: CANDIDA INFECTION
     Dosage: 200 MG, DAILY
     Route: 042
     Dates: start: 20120926, end: 20120927
  2. ECALTA [Suspect]
     Dosage: 100 MG, DAILY
     Route: 042
     Dates: start: 20120927, end: 20121007
  3. METOCLOPRAMIDE [Concomitant]
     Indication: NAUSEA
     Dosage: UNK
     Dates: start: 20121005
  4. TRAMADOL [Concomitant]
     Indication: PAIN
     Dosage: 50 MG, DAILY
     Route: 048
     Dates: start: 20120920, end: 20121004
  5. ATORVASTATIN [Concomitant]
     Indication: HYPERLIPIDAEMIA
     Dosage: 10 MG, DAILY
     Route: 048
     Dates: start: 20110919
  6. PARACETAMOL [Concomitant]
     Indication: PAIN
     Dosage: 1 G, DAILY
     Route: 048
     Dates: start: 20121005
  7. OMEPRAZOLE [Concomitant]
     Indication: GASTRITIS PROPHYLAXIS
     Dosage: 20 MG, DAILY
     Route: 048
     Dates: start: 20120919
  8. FLUCONAZOLE [Concomitant]
     Indication: CANDIDA INFECTION
     Dosage: 400 MG, DAILY
     Route: 048
     Dates: start: 20120915, end: 20120915
  9. FLUCONAZOLE [Concomitant]
     Dosage: 200 MG, DAILY
     Route: 048
     Dates: start: 20120916, end: 20120926
  10. ACETYLCYSTEINE [Concomitant]
     Indication: PNEUMONIA
     Dosage: UNK
     Route: 048
     Dates: start: 20121005
  11. CIPROFLOXACIN [Concomitant]
     Indication: PNEUMONIA
     Dosage: 200 MG, DAILY
     Route: 042
     Dates: start: 20120924, end: 20120928
  12. LEVOFLOXACIN [Concomitant]
     Indication: PNEUMONIA
     Dosage: 500 MG, DAILY
     Route: 048
     Dates: start: 20120928
  13. METAMIZOLE [Concomitant]
     Indication: PAIN
     Dosage: UNK
     Route: 048
     Dates: start: 20121005
  14. LOSARTAN [Concomitant]
     Indication: HYPERTENSION
     Dosage: 50 MG, DAILY
     Route: 048
     Dates: start: 20120915
  15. DOXAZOSIN [Concomitant]
     Indication: HYPERTENSION
     Dosage: 4 MG, DAILY
     Route: 048
     Dates: start: 20120919, end: 20121004
  16. ATENOLOL [Concomitant]
     Indication: HYPERTENSION
     Dosage: 50 MG, DAILY
     Route: 048
     Dates: start: 20110426
  17. ENALAPRIL [Concomitant]
     Indication: HYPERTENSION
     Dosage: 20 MG, DAILY
     Route: 048
     Dates: start: 20110913, end: 20120915
  18. AMLODIPINE [Concomitant]
     Indication: HYPERTENSION
     Dosage: 10 MG, DAILY
     Route: 048
     Dates: start: 20110406
  19. FUROSEMIDE [Concomitant]
     Indication: HYPERTENSION
     Dosage: 40 MG, DAILY
     Route: 048
     Dates: start: 20121005
  20. MASTICAL [Concomitant]
     Indication: CALCIUM DEFICIENCY
     Dosage: 1250 MG, DAILY
     Route: 048
     Dates: start: 20110602, end: 20120928
  21. NOLOTIL /SPA/ [Concomitant]
     Indication: PAIN
     Dosage: 2 G, DAILY
     Route: 042
     Dates: start: 20120918, end: 20120920
  22. PERFALGAN [Concomitant]
     Indication: PAIN
     Dosage: 1 G, DAILY
     Route: 042
     Dates: start: 20120916, end: 20120926
  23. RENAGEL [Concomitant]
     Indication: HYPERPHOSPHATAEMIA
     Dosage: 800 MG, DAILY
     Route: 048
     Dates: start: 20110915, end: 20120912
  24. SEPTRIN FORTE [Concomitant]
     Indication: PNEUMONIA
     Dosage: 160 MG/ 800 MG, UNK
     Route: 048
     Dates: start: 20121001

REACTIONS (2)
  - Back pain [Recovered/Resolved]
  - Pain in extremity [Recovered/Resolved]
